FAERS Safety Report 12531608 (Version 1)
Quarter: 2016Q3

REPORT INFORMATION
  Report Type: Spontaneous
  Country: US (occurrence: US)
  Receive Date: 20160706
  Receipt Date: 20160706
  Transmission Date: 20161109
  Serious: Yes (Death)
  Sender: FDA-Public Use
  Company Number: US-MYLANLABS-2016M1027920

PATIENT

DRUGS (1)
  1. METHADONE [Suspect]
     Active Substance: METHADONE HYDROCHLORIDE
     Indication: PAIN MANAGEMENT
     Dosage: 10 MG ONE TO TWO TABS EVERY EIGHT HOURS
     Route: 065

REACTIONS (4)
  - Respiratory failure [Fatal]
  - Drug prescribing error [Fatal]
  - Toxicity to various agents [Fatal]
  - Pulmonary oedema [Fatal]
